FAERS Safety Report 20881468 (Version 2)
Quarter: 2023Q2

REPORT INFORMATION
  Report Type: Spontaneous
  Country: US (occurrence: US)
  Receive Date: 20220526
  Receipt Date: 20230516
  Transmission Date: 20230721
  Serious: No
  Sender: FDA-Public Use
  Company Number: US-RADIUS HEALTH INC.-2022US001403

PATIENT
  Age: 66 Year
  Sex: Female

DRUGS (5)
  1. TYMLOS [Suspect]
     Active Substance: ABALOPARATIDE
     Indication: Osteoporosis postmenopausal
     Dosage: 80 MCG, QD
     Route: 058
     Dates: start: 202106
  2. TYMLOS [Suspect]
     Active Substance: ABALOPARATIDE
     Indication: Osteoporosis
     Dosage: RESTARTED AT REDUCED DOSAGE AND TITRATED DOSE BACK UP AS TOLERANCE IMPROVED.
     Route: 058
  3. LEVOTHYROXINE [Concomitant]
     Active Substance: LEVOTHYROXINE
     Indication: Product used for unknown indication
     Dosage: 25 MCG DAILY
  4. FAMOTIDINE [Concomitant]
     Active Substance: FAMOTIDINE
     Indication: Product used for unknown indication
     Dosage: 10 MG BID
  5. FLEXERIL [Concomitant]
     Active Substance: CYCLOBENZAPRINE HYDROCHLORIDE
     Indication: Product used for unknown indication
     Dosage: 5 MG EVERY 8 HOURS AS NEEDED

REACTIONS (6)
  - Migraine [Recovered/Resolved]
  - Injection site bruising [Recovering/Resolving]
  - Headache [Recovering/Resolving]
  - Bone pain [Recovering/Resolving]
  - Heart rate increased [Recovering/Resolving]
  - Off label use [Unknown]

NARRATIVE: CASE EVENT DATE: 20210601
